FAERS Safety Report 5244979-7 (Version None)
Quarter: 2007Q1

REPORT INFORMATION
  Report Type: 
  Country: None (occurrence: None)
  Receive Date: 20070223
  Receipt Date: 20070213
  Transmission Date: 20070707
  Serious: Yes (Other)
  Sender: FDA-Public Use
  Company Number: US-JNJFOC-20070201191

PATIENT
  Sex: Female
  Weight: 79.38 kg

DRUGS (6)
  1. REMICADE [Suspect]
     Dosage: DOSE: 3 VIALS
     Route: 042
  2. REMICADE [Suspect]
     Dosage: DOSE: 3 VIALS
     Route: 042
  3. REMICADE [Suspect]
     Route: 042
  4. REMICADE [Suspect]
     Route: 042
  5. REMICADE [Suspect]
     Indication: RHEUMATOID ARTHRITIS
     Route: 042
  6. SULFASALAZINE [Concomitant]
     Dosage: FOR GREATER THAN 6 MONTHS
     Route: 065

REACTIONS (1)
  - HEPATOMEGALY [None]
